FAERS Safety Report 9499968 (Version 1)
Quarter: 2013Q3

REPORT INFORMATION
  Report Type: Spontaneous
  Country: GB (occurrence: None)
  Receive Date: 20130903
  Receipt Date: 20130903
  Transmission Date: 20140515
  Serious: Yes (Other)
  Sender: FDA-Public Use
  Company Number: 2013AP007619

PATIENT
  Age: 73 Year
  Sex: Female

DRUGS (3)
  1. ALENDRONATE (ALENDRONATE SODIUM) [Suspect]
     Route: 048
     Dates: start: 20120619
  2. RISEDRONATE SODIUM [Suspect]
     Route: 048
     Dates: start: 201207
  3. PARACETAMOL (PARACETAMOL) [Concomitant]

REACTIONS (3)
  - Myalgia [None]
  - Fatigue [None]
  - Asthenia [None]
